FAERS Safety Report 9316804 (Version 4)
Quarter: 2013Q4

REPORT INFORMATION
  Report Type: Spontaneous
  Country: US (occurrence: None)
  Receive Date: 20130522
  Receipt Date: 20131125
  Transmission Date: 20140711
  Serious: Yes (Death, Other)
  Sender: FDA-Public Use
  Company Number: ADR-2013-00855

PATIENT
  Sex: Male

DRUGS (1)
  1. BACLOFEN INTRATHECAL [Suspect]
     Indication: MUSCLE SPASTICITY

REACTIONS (19)
  - Device malfunction [None]
  - Device occlusion [None]
  - Implant site infection [None]
  - Implant site erosion [None]
  - Drug withdrawal syndrome [None]
  - Muscle spasticity [None]
  - Musculoskeletal stiffness [None]
  - Device dislocation [None]
  - Drug tolerance [None]
  - Malaise [None]
  - Influenza [None]
  - Pneumonia [None]
  - Haematotoxicity [None]
  - Device dislocation [None]
  - Device kink [None]
  - Pain [None]
  - Osteoporosis [None]
  - Lower limb fracture [None]
  - Implant site induration [None]
